FAERS Safety Report 12118361 (Version 1)
Quarter: 2016Q1

REPORT INFORMATION
  Report Type: Spontaneous
  Country: US (occurrence: US)
  Receive Date: 20160226
  Receipt Date: 20160226
  Transmission Date: 20160526
  Serious: No
  Sender: FDA-Public Use
  Company Number: US-ASTRAZENECA-2016SE16522

PATIENT
  Sex: Male

DRUGS (5)
  1. BYETTA [Suspect]
     Active Substance: EXENATIDE
     Route: 065
  2. GLIMEPIRIDE. [Concomitant]
     Active Substance: GLIMEPIRIDE
  3. TOUJEO [Concomitant]
     Active Substance: INSULIN GLARGINE
  4. BYDUREON [Suspect]
     Active Substance: EXENATIDE
     Route: 065
  5. METFORMIN [Concomitant]
     Active Substance: METFORMIN HYDROCHLORIDE

REACTIONS (4)
  - Glycosylated haemoglobin increased [Unknown]
  - Middle insomnia [Unknown]
  - Blood glucose decreased [Unknown]
  - Intentional product misuse [Unknown]
